FAERS Safety Report 8376225-X (Version None)
Quarter: 2012Q2

REPORT INFORMATION
  Report Type: 
  Country: None (occurrence: None)
  Receive Date: 20120518
  Receipt Date: 20120509
  Transmission Date: 20120825
  Serious: Yes (Other)
  Sender: FDA-Public Use
  Company Number: 1282909

PATIENT
  Sex: Male

DRUGS (2)
  1. NITROPRESS [Suspect]
     Indication: BLOOD PRESSURE SYSTOLIC ABNORMAL
     Dosage: , INTRAVENOUS
     Route: 041
     Dates: start: 20120503, end: 20120503
  2. DEXTROSE 5% INJECTION, USP, IN FLEXIBLE PLASTIC CONTAINER (DEXTROSE) [Concomitant]

REACTIONS (3)
  - HEART RATE INCREASED [None]
  - HYPERTENSION [None]
  - CONDITION AGGRAVATED [None]
